FAERS Safety Report 9214514 (Version 3)
Quarter: 2013Q2

REPORT INFORMATION
  Report Type: Spontaneous
  Country: US (occurrence: US)
  Receive Date: 20130405
  Receipt Date: 20130618
  Transmission Date: 20140414
  Serious: Yes (Death, Hospitalization)
  Sender: FDA-Public Use
  Company Number: US-GILEAD-2013-0072848

PATIENT
  Sex: Female

DRUGS (7)
  1. LETAIRIS [Suspect]
     Indication: PULMONARY HYPERTENSION
     Dosage: 10 MG, QD
     Route: 048
     Dates: start: 201301, end: 201302
  2. LETAIRIS [Suspect]
     Indication: SCLERODERMA
  3. TREPROSTINIL [Concomitant]
  4. ROPINIROLE [Concomitant]
  5. ONDANSETRON [Concomitant]
  6. MORPHINE [Concomitant]
  7. LORAZEPAM [Concomitant]

REACTIONS (2)
  - Pulmonary hypertension [Fatal]
  - Hypotension [Unknown]
